FAERS Safety Report 6519208-4 (Version None)
Quarter: 2009Q4

REPORT INFORMATION
  Report Type: 
  Country: None (occurrence: None)
  Receive Date: 20091228
  Receipt Date: 20091215
  Transmission Date: 20100525
  Serious: Yes (Other)
  Sender: FDA-Public Use
  Company Number: PHHY2009FR55793

PATIENT
  Age: 70 Year
  Sex: Female

DRUGS (2)
  1. ZOMETA [Suspect]
     Dosage: UNK
     Route: 042
     Dates: start: 20060101, end: 20080601
  2. CHEMOTHERAPEUTICS NOS [Concomitant]

REACTIONS (4)
  - JAW OPERATION [None]
  - OSTEONECROSIS [None]
  - SUPERINFECTION [None]
  - TOOTH ABSCESS [None]
